FAERS Safety Report 17502322 (Version 2)
Quarter: 2021Q4

REPORT INFORMATION
  Report Type: Spontaneous
  Country: FR (occurrence: FR)
  Receive Date: 20200305
  Receipt Date: 20211207
  Transmission Date: 20220303
  Serious: Yes (Hospitalization, Other)
  Sender: FDA-Public Use
  Company Number: None

PATIENT
  Age: 73 Year
  Sex: Female
  Weight: 58.4 kg

DRUGS (10)
  1. OLANZAPINE [Suspect]
     Active Substance: OLANZAPINE
     Indication: Psychotic disorder
     Dosage: 7.5 MILLIGRAM, QD
     Route: 048
  2. TRIMEPRAZINE [Suspect]
     Active Substance: TRIMEPRAZINE
     Indication: Psychotic disorder
     Dosage: 10 GTT DROPS, QD
     Route: 048
  3. PRAZEPAM [Suspect]
     Active Substance: PRAZEPAM
     Indication: Psychotic disorder
     Dosage: UNK
     Route: 048
  4. FUROSEMIDE [Concomitant]
     Active Substance: FUROSEMIDE
     Dosage: 20 MILLIGRAM, QD
     Route: 048
  5. SPIRONOLACTONE [Concomitant]
     Active Substance: SPIRONOLACTONE
     Dosage: 50 MILLIGRAM, QD
     Route: 048
  6. PANTOPRAZOLE [Concomitant]
     Active Substance: PANTOPRAZOLE
     Dosage: 40 MILLIGRAM, QD
     Route: 048
  7. LACTULOSE [Concomitant]
     Active Substance: LACTULOSE
     Dosage: UNK
     Route: 048
  8. FERROUS SULFATE [Concomitant]
     Active Substance: FERROUS SULFATE
     Dosage: 2 DOSAGE FORM, QD
     Route: 048
  9. INSULIN PORK\INSULIN PURIFIED PORK [Concomitant]
     Active Substance: INSULIN PORK\INSULIN PURIFIED PORK
     Dosage: 28 INTERNATIONAL UNIT, QD
     Route: 058
  10. VENLAFAXINE [Concomitant]
     Active Substance: VENLAFAXINE HYDROCHLORIDE
     Dosage: UNK
     Route: 048

REACTIONS (2)
  - Confusional state [Not Recovered/Not Resolved]
  - Disorientation [Not Recovered/Not Resolved]

NARRATIVE: CASE EVENT DATE: 20190906
